FAERS Safety Report 16201827 (Version 3)
Quarter: 2019Q2

REPORT INFORMATION
  Report Type: Spontaneous
  Country: US (occurrence: US)
  Receive Date: 20190416
  Receipt Date: 20190625
  Transmission Date: 20190711
  Serious: No
  Sender: FDA-Public Use
  Company Number: US-GLAXOSMITHKLINE-US2019GSK053632

PATIENT
  Sex: Female
  Weight: 67.12 kg

DRUGS (1)
  1. ADVAIR DISKUS [Suspect]
     Active Substance: FLUTICASONE PROPIONATE\SALMETEROL XINAFOATE
     Indication: ASTHMA
     Dosage: UNK UNK, BID
     Route: 055
     Dates: start: 20190201

REACTIONS (7)
  - Device malfunction [Unknown]
  - Underdose [Unknown]
  - Ill-defined disorder [Unknown]
  - Drug dose omission by device [Unknown]
  - Product complaint [Unknown]
  - Dyspnoea [Unknown]
  - Wheezing [Unknown]
